FAERS Safety Report 9510607 (Version 1)
Quarter: 2013Q3

REPORT INFORMATION
  Report Type: Spontaneous
  Country: US (occurrence: US)
  Receive Date: 20130909
  Receipt Date: 20130909
  Transmission Date: 20140515
  Serious: Yes (Other)
  Sender: FDA-Public Use
  Company Number: US-ACTAVIS-2013-15421

PATIENT
  Age: 44 Year
  Sex: Female

DRUGS (1)
  1. DOXYCYCLINE HYCLATE (WATSON LABORATORIES) [Suspect]
     Indication: PRODUCT USED FOR UNKNOWN INDICATION
     Dosage: 100MG, ONE CAPSULE TWICE DAILY
     Route: 048
     Dates: start: 20130822, end: 20130822

REACTIONS (1)
  - Toxicity to various agents [Recovering/Resolving]
